FAERS Safety Report 6283976-X (Version None)
Quarter: 2009Q3

REPORT INFORMATION
  Report Type: 
  Country: None (occurrence: None)
  Receive Date: 20090722
  Receipt Date: 20090714
  Transmission Date: 20100115
  Serious: Yes (Other)
  Sender: FDA-Public Use
  Company Number: ADR20457454-001

PATIENT
  Age: 26 Year
  Sex: Male

DRUGS (5)
  1. RISPERIDONE [Suspect]
     Indication: SCHIZOPHRENIA
     Dosage: 8 MG PER DAY, ORAL
     Route: 048
     Dates: start: 20070101, end: 20090121
  2. RISPERIDONE [Suspect]
     Indication: SCHIZOPHRENIA
     Dosage: 8 MG PER DAY, ORAL
     Route: 048
     Dates: start: 20090325
  3. CHLORPROMAZINE [Concomitant]
  4. CITALOPRAM HYDROBROMIDE [Concomitant]
  5. QUETIAPINE FUMARATE [Concomitant]

REACTIONS (1)
  - NEUTROPENIA [None]
